FAERS Safety Report 9766405 (Version 1)
Quarter: 2013Q4

REPORT INFORMATION
  Report Type: Spontaneous
  Country: US (occurrence: US)
  Receive Date: 20131217
  Receipt Date: 20131217
  Transmission Date: 20140711
  Serious: Yes (Hospitalization)
  Sender: FDA-Public Use
  Company Number: US-GLAXOSMITHKLINE-A1027158A

PATIENT
  Age: 53 Year
  Sex: Male
  Weight: 96.8 kg

DRUGS (11)
  1. VOTRIENT [Suspect]
     Indication: RENAL CANCER
     Dosage: 800MG PER DAY
     Route: 048
  2. PROSCAR [Concomitant]
  3. ATIVAN [Concomitant]
  4. ZOLPIDEM [Concomitant]
  5. LIPITOR [Concomitant]
  6. METOPROLOL [Concomitant]
  7. FISH OIL [Concomitant]
  8. MULTIVITAMIN [Concomitant]
  9. FIBER [Concomitant]
  10. ASPIRIN [Concomitant]
  11. FLEXERIL [Concomitant]
     Indication: PRODUCT USED FOR UNKNOWN INDICATION
     Dosage: 5MG UNKNOWN
     Route: 065

REACTIONS (3)
  - Nausea [Unknown]
  - Weight decreased [Unknown]
  - White blood cell count decreased [Unknown]
